FAERS Safety Report 5919645-2 (Version None)
Quarter: 2008Q4

REPORT INFORMATION
  Report Type: 
  Country: None (occurrence: None)
  Receive Date: 20081015
  Receipt Date: 20081003
  Transmission Date: 20090506
  Serious: Yes (Other)
  Sender: FDA-Public Use
  Company Number: ES-ROCHE-589776

PATIENT
  Age: 40 Year
  Sex: Male

DRUGS (5)
  1. PEG-INTERFERON A-2A (RO 25-8310) [Suspect]
     Route: 065
     Dates: start: 20061101
  2. RIBAVIRIN [Suspect]
     Route: 065
     Dates: start: 20061101
  3. TENOFOVIR DISOPROXIL FUMARATE [Suspect]
     Indication: HIV INFECTION
     Route: 065
  4. EFAVIRENZ [Concomitant]
     Indication: HIV INFECTION
  5. EMTRICITABINE [Concomitant]
     Indication: HIV INFECTION

REACTIONS (3)
  - ANAEMIA [None]
  - HIV INFECTION CDC GROUP IV SUBGROUP E [None]
  - RENAL TUBULAR DISORDER [None]
